FAERS Safety Report 18531492 (Version 1)
Quarter: 2020Q4

REPORT INFORMATION
  Report Type: Report from Study
  Country: JP (occurrence: JP)
  Receive Date: 20201122
  Receipt Date: 20201122
  Transmission Date: 20210114
  Serious: Yes (Other)
  Sender: FDA-Public Use
  Company Number: JP-JNJFOC-20201125112

PATIENT

DRUGS (3)
  1. RISPERDAL [Suspect]
     Active Substance: RISPERIDONE
     Indication: DELIRIUM
     Route: 065
  2. QUETIAPINE. [Suspect]
     Active Substance: QUETIAPINE
     Indication: DELIRIUM
     Route: 065
  3. HALOMONTH [Suspect]
     Active Substance: HALOPERIDOL DECANOATE
     Indication: DELIRIUM
     Dosage: PARENTERAL
     Route: 065

REACTIONS (7)
  - Urinary retention [Unknown]
  - Fall [Unknown]
  - Pneumonia aspiration [Unknown]
  - Hyperglycaemia [Unknown]
  - Somnolence [Unknown]
  - Extrapyramidal disorder [Unknown]
  - Hypotension [Unknown]
